FAERS Safety Report 24740540 (Version 3)
Quarter: 2025Q2

REPORT INFORMATION
  Report Type: Spontaneous
  Country: CA (occurrence: CA)
  Receive Date: 20241217
  Receipt Date: 20250616
  Transmission Date: 20250716
  Serious: Yes (Death, Life-Threatening, Hospitalization, Disabling, Congenital Anomaly, Other)
  Sender: Haleon PLC
  Company Number: CA-002147023-NVSC2023CA000968

PATIENT
  Age: 43 Year
  Sex: Female
  Weight: 68 kg

DRUGS (98)
  1. VOLTAREN [Suspect]
     Active Substance: DICLOFENAC SODIUM
     Indication: Product used for unknown indication
  2. VOLTAREN [Suspect]
     Active Substance: DICLOFENAC SODIUM
     Indication: Product used for unknown indication
  3. DICLOFENAC SODIUM [Suspect]
     Active Substance: DICLOFENAC SODIUM
     Indication: Product used for unknown indication
  4. DICLOFENAC SODIUM [Suspect]
     Active Substance: DICLOFENAC SODIUM
  5. COSENTYX [Suspect]
     Active Substance: SECUKINUMAB
     Indication: Psoriatic arthropathy
  6. COSENTYX [Suspect]
     Active Substance: SECUKINUMAB
     Indication: Rheumatoid arthritis
  7. ERELZI [Suspect]
     Active Substance: ETANERCEPT-SZZS
     Indication: Rheumatoid arthritis
  8. ERELZI [Suspect]
     Active Substance: ETANERCEPT-SZZS
  9. AIMOVIG [Suspect]
     Active Substance: ERENUMAB-AOOE
     Indication: Migraine
  10. LEFLUNOMIDE [Suspect]
     Active Substance: LEFLUNOMIDE
     Indication: Rheumatoid arthritis
  11. LEFLUNOMIDE [Suspect]
     Active Substance: LEFLUNOMIDE
  12. LEFLUNOMIDE [Suspect]
     Active Substance: LEFLUNOMIDE
  13. LEFLUNOMIDE [Suspect]
     Active Substance: LEFLUNOMIDE
  14. LEFLUNOMIDE [Suspect]
     Active Substance: LEFLUNOMIDE
  15. LEFLUNOMIDE [Suspect]
     Active Substance: LEFLUNOMIDE
  16. LEFLUNOMIDE [Suspect]
     Active Substance: LEFLUNOMIDE
  17. LEFLUNOMIDE [Suspect]
     Active Substance: LEFLUNOMIDE
  18. LEFLUNOMIDE [Suspect]
     Active Substance: LEFLUNOMIDE
  19. FOLIC ACID [Suspect]
     Active Substance: FOLIC ACID
     Indication: Rheumatoid arthritis
     Route: 048
  20. FOLIC ACID [Suspect]
     Active Substance: FOLIC ACID
  21. FOLIC ACID [Suspect]
     Active Substance: FOLIC ACID
     Route: 058
  22. FOLIC ACID [Suspect]
     Active Substance: FOLIC ACID
  23. FOLIC ACID [Suspect]
     Active Substance: FOLIC ACID
     Route: 048
  24. FOLIC ACID [Suspect]
     Active Substance: FOLIC ACID
     Route: 048
  25. FOLIC ACID [Suspect]
     Active Substance: FOLIC ACID
     Route: 048
  26. FOLIC ACID [Suspect]
     Active Substance: FOLIC ACID
  27. FOLIC ACID [Suspect]
     Active Substance: FOLIC ACID
  28. FOLIC ACID [Suspect]
     Active Substance: FOLIC ACID
  29. FOLIC ACID [Suspect]
     Active Substance: FOLIC ACID
     Route: 048
  30. FOLIC ACID [Suspect]
     Active Substance: FOLIC ACID
     Route: 065
  31. FOLIC ACID [Suspect]
     Active Substance: FOLIC ACID
     Route: 065
  32. FOLIC ACID [Suspect]
     Active Substance: FOLIC ACID
     Route: 048
  33. FOLIC ACID [Suspect]
     Active Substance: FOLIC ACID
     Route: 048
  34. FOLIC ACID [Suspect]
     Active Substance: FOLIC ACID
     Route: 048
  35. FOLIC ACID [Suspect]
     Active Substance: FOLIC ACID
     Route: 065
  36. FOLIC ACID [Suspect]
     Active Substance: FOLIC ACID
     Route: 065
  37. CANDESARTAN [Suspect]
     Active Substance: CANDESARTAN
     Indication: Migraine
     Route: 048
  38. RITUXIMAB [Suspect]
     Active Substance: RITUXIMAB
     Indication: Rheumatoid arthritis
  39. RITUXIMAB [Suspect]
     Active Substance: RITUXIMAB
  40. RITUXIMAB [Suspect]
     Active Substance: RITUXIMAB
  41. RITUXIMAB [Suspect]
     Active Substance: RITUXIMAB
  42. RITUXIMAB [Suspect]
     Active Substance: RITUXIMAB
  43. RITUXIMAB [Suspect]
     Active Substance: RITUXIMAB
  44. METHOTREXATE [Suspect]
     Active Substance: METHOTREXATE
     Indication: Rheumatoid arthritis
     Route: 058
  45. METHOTREXATE [Suspect]
     Active Substance: METHOTREXATE
     Route: 048
  46. METHOTREXATE [Suspect]
     Active Substance: METHOTREXATE
     Route: 048
  47. METHOTREXATE [Suspect]
     Active Substance: METHOTREXATE
     Route: 048
  48. METHOTREXATE [Suspect]
     Active Substance: METHOTREXATE
     Route: 048
  49. METHOTREXATE [Suspect]
     Active Substance: METHOTREXATE
     Route: 013
  50. ADALIMUMAB [Suspect]
     Active Substance: ADALIMUMAB
     Indication: Rheumatoid arthritis
     Route: 058
  51. ADALIMUMAB [Suspect]
     Active Substance: ADALIMUMAB
     Route: 058
  52. ALENDRONATE SODIUM [Suspect]
     Active Substance: ALENDRONATE SODIUM
     Indication: Rheumatoid arthritis
  53. ALENDRONATE SODIUM [Suspect]
     Active Substance: ALENDRONATE SODIUM
  54. ALENDRONATE SODIUM [Suspect]
     Active Substance: ALENDRONATE SODIUM
  55. ATOMOXETINE [Suspect]
     Active Substance: ATOMOXETINE
     Indication: Migraine
  56. METHOTREXATE [Suspect]
     Active Substance: METHOTREXATE
     Indication: Rheumatoid arthritis
  57. METHOTREXATE [Suspect]
     Active Substance: METHOTREXATE
     Indication: Psoriatic arthropathy
  58. METHOTREXATE [Suspect]
     Active Substance: METHOTREXATE
     Dosage: SUBCUTANEOUS
  59. METHOTREXATE [Suspect]
     Active Substance: METHOTREXATE
  60. METHOTREXATE [Suspect]
     Active Substance: METHOTREXATE
     Dosage: INTRA-ARTERIAL
  61. METHOTREXATE [Suspect]
     Active Substance: METHOTREXATE
     Dosage: ORAL
  62. METHOTREXATE [Suspect]
     Active Substance: METHOTREXATE
  63. METHOTREXATE [Suspect]
     Active Substance: METHOTREXATE
  64. METHOTREXATE [Suspect]
     Active Substance: METHOTREXATE
  65. METHOTREXATE [Suspect]
     Active Substance: METHOTREXATE
     Dosage: ORAL
  66. METHOTREXATE [Suspect]
     Active Substance: METHOTREXATE
     Dosage: ORAL
  67. METHOTREXATE [Suspect]
     Active Substance: METHOTREXATE
     Dosage: ORAL
  68. METHOTREXATE [Suspect]
     Active Substance: METHOTREXATE
     Dosage: ORAL
  69. METHOTREXATE [Suspect]
     Active Substance: METHOTREXATE
  70. METHOTREXATE [Suspect]
     Active Substance: METHOTREXATE
  71. METHOTREXATE [Suspect]
     Active Substance: METHOTREXATE
     Dosage: INTRA-ARTERIAL
  72. METHOTREXATE [Suspect]
     Active Substance: METHOTREXATE
  73. METHOTREXATE [Suspect]
     Active Substance: METHOTREXATE
     Dosage: ORAL
  74. METHOTREXATE [Suspect]
     Active Substance: METHOTREXATE
     Dosage: INTRA-ARTERIAL
  75. METHOTREXATE [Suspect]
     Active Substance: METHOTREXATE
     Dosage: ORAL
  76. METHOTREXATE [Suspect]
     Active Substance: METHOTREXATE
     Dosage: INTRA-ARTERIAL
  77. METHOTREXATE [Suspect]
     Active Substance: METHOTREXATE
  78. METHOTREXATE [Suspect]
     Active Substance: METHOTREXATE
     Dosage: ORAL
  79. METHOTREXATE [Suspect]
     Active Substance: METHOTREXATE
  80. METHOTREXATE [Suspect]
     Active Substance: METHOTREXATE
  81. METHOTREXATE [Suspect]
     Active Substance: METHOTREXATE
  82. METHOTREXATE [Suspect]
     Active Substance: METHOTREXATE
     Dosage: ORAL
  83. METHOTREXATE [Suspect]
     Active Substance: METHOTREXATE
     Dosage: ORAL
  84. METHOTREXATE [Suspect]
     Active Substance: METHOTREXATE
     Dosage: ORAL
  85. METHOTREXATE [Suspect]
     Active Substance: METHOTREXATE
  86. METHOTREXATE [Suspect]
     Active Substance: METHOTREXATE
  87. METHOTREXATE [Suspect]
     Active Substance: METHOTREXATE
  88. METHOTREXATE [Suspect]
     Active Substance: METHOTREXATE
  89. METHOTREXATE [Suspect]
     Active Substance: METHOTREXATE
  90. HYRIMOZ [Concomitant]
     Active Substance: ADALIMUMAB-ADAZ
     Indication: Product used for unknown indication
  91. COSENTYX [Concomitant]
     Active Substance: SECUKINUMAB
     Indication: Product used for unknown indication
  92. ALENDRONIC ACID [Suspect]
     Active Substance: ALENDRONIC ACID
     Indication: Rheumatoid arthritis
     Route: 048
  93. ALENDRONIC ACID [Suspect]
     Active Substance: ALENDRONIC ACID
     Route: 048
  94. ALENDRONIC ACID [Suspect]
     Active Substance: ALENDRONIC ACID
  95. COSENTYX [Suspect]
     Active Substance: SECUKINUMAB
     Indication: Rheumatoid arthritis
  96. COSENTYX [Suspect]
     Active Substance: SECUKINUMAB
     Indication: Psoriatic arthropathy
  97. COSENTYX [Suspect]
     Active Substance: SECUKINUMAB
     Indication: Product used for unknown indication
  98. LEFLUNOMIDE [Suspect]
     Active Substance: LEFLUNOMIDE
     Indication: Rheumatoid arthritis

REACTIONS (25)
  - Arthropathy [Fatal]
  - Infusion related reaction [Fatal]
  - Swollen joint count increased [Not Recovered/Not Resolved]
  - Off label use [Not Recovered/Not Resolved]
  - Drug ineffective for unapproved indication [Not Recovered/Not Resolved]
  - Malaise [Not Recovered/Not Resolved]
  - Product use in unapproved indication [Not Recovered/Not Resolved]
  - Rheumatic fever [Not Recovered/Not Resolved]
  - Migraine [Not Recovered/Not Resolved]
  - Drug ineffective [Fatal]
  - Blepharospasm [Unknown]
  - Treatment failure [Not Recovered/Not Resolved]
  - Condition aggravated [Unknown]
  - Rheumatoid factor positive [Not Recovered/Not Resolved]
  - Drug tolerance decreased [Not Recovered/Not Resolved]
  - Memory impairment [Not Recovered/Not Resolved]
  - Taste disorder [Unknown]
  - Decreased appetite [Unknown]
  - Product quality issue [Unknown]
  - Epilepsy [Unknown]
  - Pain [Fatal]
  - Contraindicated product administered [Not Recovered/Not Resolved]
  - Gastrooesophageal reflux disease [Unknown]
  - Therapeutic product effect incomplete [Not Recovered/Not Resolved]
  - Product use issue [Not Recovered/Not Resolved]
